FAERS Safety Report 25456055 (Version 2)
Quarter: 2025Q2

REPORT INFORMATION
  Report Type: Spontaneous
  Country: US (occurrence: US)
  Receive Date: 20250619
  Receipt Date: 20250624
  Transmission Date: 20250717
  Serious: Yes (Other)
  Sender: SANDOZ
  Company Number: US-002147023-NVSC2025US094831

PATIENT
  Age: 72 Year
  Sex: Female

DRUGS (5)
  1. ATORVASTATIN [Suspect]
     Active Substance: ATORVASTATIN
     Indication: Product used for unknown indication
     Route: 065
  2. ATORVASTATIN [Suspect]
     Active Substance: ATORVASTATIN
     Route: 065
  3. EZETIMIBE [Suspect]
     Active Substance: EZETIMIBE
     Indication: Product used for unknown indication
     Dosage: 10 MG, QD
     Route: 065
  4. LEQVIO [Suspect]
     Active Substance: INCLISIRAN SODIUM
     Indication: Hyperlipidaemia
     Route: 058
     Dates: start: 20221130, end: 20221130
  5. SIMVASTATIN [Suspect]
     Active Substance: SIMVASTATIN
     Indication: Product used for unknown indication
     Route: 065

REACTIONS (13)
  - Liver injury [Unknown]
  - Loss of consciousness [Unknown]
  - Lip swelling [Recovered/Resolved]
  - Tooth infection [Unknown]
  - Serum ferritin increased [Unknown]
  - Lip swelling [Unknown]
  - Liver disorder [Unknown]
  - Gastrooesophageal reflux disease [Unknown]
  - Skin disorder [Unknown]
  - Pruritus [Unknown]
  - Pain [Unknown]
  - Blood cholesterol abnormal [Unknown]
  - Drug ineffective [Unknown]

NARRATIVE: CASE EVENT DATE: 20221130
